FAERS Safety Report 13964448 (Version 12)
Quarter: 2018Q3

REPORT INFORMATION
  Report Type: Spontaneous
  Country: DE (occurrence: DE)
  Receive Date: 20170913
  Receipt Date: 20180927
  Transmission Date: 20181010
  Serious: Yes (Other)
  Sender: FDA-Public Use
  Company Number: DE-PFIZER INC-2017393936

PATIENT
  Age: 63 Year
  Sex: Male
  Weight: 119 kg

DRUGS (24)
  1. HEPARIN?RATIOPHARM [Interacting]
     Active Substance: HEPARIN SODIUM
     Dosage: 55000 IU/DAY
     Route: 042
     Dates: start: 20170829, end: 20170829
  2. NORADRENALINE [Interacting]
     Active Substance: NOREPINEPHRINE
     Dosage: 20 UG, UNK
     Dates: start: 20170829
  3. AMLODIPINE [Concomitant]
     Active Substance: AMLODIPINE BESYLATE
     Dosage: 1 UNK, QD
  4. TRANEXAMIC ACID. [Interacting]
     Active Substance: TRANEXAMIC ACID
     Dosage: 1 G BEFORE BYPASS START
     Dates: start: 20170828
  5. ALLOPURINOL. [Concomitant]
     Active Substance: ALLOPURINOL
     Dosage: 300 MG, 1X/DAY (0?0?1) QD
  6. AMIODARON [Concomitant]
     Active Substance: AMIODARONE
     Dosage: UNK
  7. AMOXICILLIN TRIHYDRATE AND CLAVULANATE POTASS [Concomitant]
     Active Substance: AMOXICILLIN\CLAVULANATE POTASSIUM
     Indication: GINGIVITIS
     Dosage: UNK
  8. CANDESARTAN. [Concomitant]
     Active Substance: CANDESARTAN
     Dosage: 55000 IU, DAILY (ALSO REPORTED AS)
  9. TRANEXAMIC ACID. [Interacting]
     Active Substance: TRANEXAMIC ACID
     Dosage: 10 ML, UNK
     Dates: start: 20170829, end: 20170829
  10. CUSTODIOL [Concomitant]
     Dosage: 950 ML, UNK
     Route: 065
     Dates: start: 20170829
  11. HEPARIN?RATIOPHARM [Interacting]
     Active Substance: HEPARIN SODIUM
     Dosage: 55000 IU/DAY
     Route: 042
     Dates: start: 20170829, end: 20170829
  12. NORADRENALINE [Interacting]
     Active Substance: NOREPINEPHRINE
     Dosage: UP TO 0.85 UG/KG/MIN (30H POST?OP)
     Route: 065
  13. SEVORANE [Concomitant]
     Active Substance: SEVOFLURANE
     Dosage: 0.6 VOL%, UNK
     Route: 065
     Dates: start: 20170829
  14. AMLODIPINE [Concomitant]
     Active Substance: AMLODIPINE BESYLATE
     Dosage: 55000 IU, DAILY (ALSO REPORTED AS)
  15. ALLOPURINOL. [Concomitant]
     Active Substance: ALLOPURINOL
     Dosage: 55000 IU, DAILY (ALSO REPORTED AS)
  16. CELIPROLOL [Concomitant]
     Active Substance: CELIPROLOL
     Dosage: 100 MG, 1X/DAY (0.5?0?0)
  17. TRANEXAMIC ACID. [Suspect]
     Active Substance: TRANEXAMIC ACID
     Dosage: 2 G, DAILY(2 G, TRANEXAMIC ACID 500 MG 5 ML)
     Route: 065
     Dates: start: 20170829
  18. HEPARIN?RATIOPHARM [Interacting]
     Active Substance: HEPARIN SODIUM
     Dosage: 55000 IU/DAY
     Route: 042
     Dates: start: 20170829, end: 20170829
  19. ALLOPURINOL. [Concomitant]
     Active Substance: ALLOPURINOL
     Dosage: 1 UNK, QD 0?0?1
  20. AMLODIPINE [Concomitant]
     Active Substance: AMLODIPINE BESYLATE
     Dosage: 5 MG, 1X/DAY QD
  21. CANDESARTAN. [Concomitant]
     Active Substance: CANDESARTAN
     Dosage: 16 MG, 1X/DAY (1?0?0), QD
  22. CANDESARTAN. [Concomitant]
     Active Substance: CANDESARTAN
     Dosage: 1 DF, DAILY (1?0?0)
  23. CELIPROLOL [Concomitant]
     Active Substance: CELIPROLOL
     Dosage: 55000 IU, DAILY (ALSO REPORTED AS)
  24. STEROFUNDIN [Concomitant]
     Active Substance: CALCIUM CHLORIDE\MAGNESIUM CHLORIDE\POTASSIUM CHLORIDE\SODIUM ACETATE\SODIUM CHLORIDE
     Dosage: 1250 ML, UNK
     Route: 065
     Dates: start: 20170829

REACTIONS (5)
  - Therapeutic response decreased [Unknown]
  - Transaminases increased [Unknown]
  - Drug interaction [Unknown]
  - Drug effect incomplete [Unknown]
  - Acute kidney injury [Unknown]

NARRATIVE: CASE EVENT DATE: 20170829
